FAERS Safety Report 18597793 (Version 1)
Quarter: 2020Q4

REPORT INFORMATION
  Report Type: Spontaneous
  Country: CN (occurrence: CN)
  Receive Date: 20201210
  Receipt Date: 20201210
  Transmission Date: 20210114
  Serious: Yes (Hospitalization)
  Sender: FDA-Public Use
  Company Number: CN-ROCHE-2727793

PATIENT
  Age: 48 Year
  Sex: Female
  Weight: 43.5 kg

DRUGS (4)
  1. SODIUM CHLORIDE. [Concomitant]
     Active Substance: SODIUM CHLORIDE
     Dosage: FOR BEVACIZUMAB
     Route: 041
     Dates: start: 20201105, end: 20201105
  2. AVASTIN [Suspect]
     Active Substance: BEVACIZUMAB
     Indication: SEROUS CYSTADENOCARCINOMA OVARY
     Route: 041
     Dates: start: 20201105, end: 20201105
  3. PACLITAXEL. [Suspect]
     Active Substance: PACLITAXEL
     Indication: SEROUS CYSTADENOCARCINOMA OVARY
     Route: 041
     Dates: start: 20201105, end: 20201105
  4. SODIUM CHLORIDE. [Concomitant]
     Active Substance: SODIUM CHLORIDE
     Indication: SEROUS CYSTADENOCARCINOMA OVARY
     Dosage: FOR PACLITAXEL
     Route: 041
     Dates: start: 20201105, end: 20201105

REACTIONS (3)
  - Off label use [Unknown]
  - Intentional product use issue [Unknown]
  - Myelosuppression [Recovering/Resolving]
